FAERS Safety Report 9818468 (Version 4)
Quarter: 2014Q1

REPORT INFORMATION
  Report Type: Spontaneous
  Country: US (occurrence: US)
  Receive Date: 20140115
  Receipt Date: 20140303
  Transmission Date: 20141002
  Serious: No
  Sender: FDA-Public Use
  Company Number: US-PFIZER INC-2014010313

PATIENT
  Age: 57 Year
  Sex: Female
  Weight: 43.5 kg

DRUGS (5)
  1. SUTENT [Suspect]
     Dosage: 50 MG, CYCLIC (4 WEEKS ON/2 WEEKS OFF)
     Dates: start: 20140103
  2. OXYCODONE [Concomitant]
     Dosage: UNK, AS NEEDED (PRN)
  3. TRAMADOL [Concomitant]
     Dosage: UNK, AS NEEDED (PRN)
  4. TUMS [Concomitant]
     Dosage: UNK, AS NEEDED (PRN)
  5. LYSINE [Concomitant]
     Indication: HERPES SIMPLEX
     Dosage: UNK

REACTIONS (7)
  - Dyspnoea [Not Recovered/Not Resolved]
  - Dysgeusia [Not Recovered/Not Resolved]
  - Burning sensation [Unknown]
  - Weight decreased [Recovered/Resolved]
  - Hallucination [Unknown]
  - Glossodynia [Recovered/Resolved]
  - Fatigue [Unknown]
